FAERS Safety Report 19931941 (Version 1)
Quarter: 2021Q4

REPORT INFORMATION
  Report Type: Spontaneous
  Country: CN (occurrence: CN)
  Receive Date: 20211007
  Receipt Date: 20211007
  Transmission Date: 20220303
  Serious: Yes (Hospitalization)
  Sender: FDA-Public Use
  Company Number: CN-BAXTER-2021BAX026926

PATIENT
  Age: 53 Year
  Sex: Male
  Weight: 55 kg

DRUGS (12)
  1. CYCLOPHOSPHAMIDE [Suspect]
     Active Substance: CYCLOPHOSPHAMIDE
     Indication: Diffuse large B-cell lymphoma
     Dosage: CYCLOPHOSPHAMIDE FOR INJECTION 1.15G + 0.9% SODIUM CHLORIDE INJECTION 250ML, FIRST CYCLE
     Route: 041
     Dates: start: 20201103, end: 20201103
  2. CYCLOPHOSPHAMIDE [Suspect]
     Active Substance: CYCLOPHOSPHAMIDE
     Dosage: CYCLOPHOSPHAMIDE FOR INJECTION + 0.9% SODIUM CHLORIDE INJECTION, DOSE REINTRODUCED
     Route: 041
  3. SODIUM CHLORIDE [Suspect]
     Active Substance: SODIUM CHLORIDE
     Indication: Medication dilution
     Dosage: CYCLOPHOSPHAMIDE FOR INJECTION 1.15G + 0.9% SODIUM CHLORIDE INJECTION 250ML, FIRST CYCLE
     Route: 041
     Dates: start: 20201103, end: 20201103
  4. SODIUM CHLORIDE [Suspect]
     Active Substance: SODIUM CHLORIDE
     Dosage: RITUXIMAB INJECTION 570 MG + 0.9% SODIUM CHLORIDE INJECTION 600ML, FIRST CYCLE
     Route: 041
     Dates: start: 20201103, end: 20201103
  5. SODIUM CHLORIDE [Suspect]
     Active Substance: SODIUM CHLORIDE
     Dosage: VINCRISTINE SULFATE FOR INJECTION 2 MG + 0.9% SODIUM CHLORIDE INJECTION 100ML, FIRST CYCLE
     Route: 041
     Dates: start: 20201103, end: 20201103
  6. DEXTROSE [Suspect]
     Active Substance: DEXTROSE
     Indication: Medication dilution
     Dosage: PIRARUBICIN HYDROCHLORIDE FOR INJECTION 75 MG + 5% GLUCOSE INJECTION 500ML, FIRST CYCLE
     Route: 041
     Dates: start: 20201103, end: 20201103
  7. RITUXIMAB [Suspect]
     Active Substance: RITUXIMAB
     Indication: Diffuse large B-cell lymphoma
     Dosage: RITUXIMAB INJECTION 570 MG + 0.9% SODIUM CHLORIDE INJECTION 600ML, FIRST CYCLE
     Route: 041
     Dates: start: 20201103, end: 20201103
  8. RITUXIMAB [Suspect]
     Active Substance: RITUXIMAB
     Dosage: RITUXIMAB INJECTION+ 0.9% SODIUM CHLORIDE INJECTION, DOSE REINTRODUCED
     Route: 041
  9. VINCRISTINE SULFATE [Suspect]
     Active Substance: VINCRISTINE SULFATE
     Indication: Diffuse large B-cell lymphoma
     Dosage: VINCRISTINE SULFATE FOR INJECTION 2 MG + 0.9% SODIUM CHLORIDE INJECTION 100ML, FIRST CYCLE
     Route: 041
     Dates: start: 20201103, end: 20201103
  10. VINCRISTINE SULFATE [Suspect]
     Active Substance: VINCRISTINE SULFATE
     Dosage: VINCRISTINE SULFATE FOR INJECTION + 0.9% SODIUM CHLORIDE INJECTION, DOSE REINTRODUCED
     Route: 041
  11. PIRARUBICIN HYDROCHLORIDE [Suspect]
     Active Substance: PIRARUBICIN HYDROCHLORIDE
     Indication: Diffuse large B-cell lymphoma
     Dosage: PIRARUBICIN HYDROCHLORIDE FOR INJECTION 75 MG + 5% GLUCOSE INJECTION 500ML, FIRST CYCLE
     Route: 041
     Dates: start: 20201103, end: 20201103
  12. PIRARUBICIN HYDROCHLORIDE [Suspect]
     Active Substance: PIRARUBICIN HYDROCHLORIDE
     Dosage: PIRARUBICIN HYDROCHLORIDE FOR INJECTION+ 5% GLUCOSE INJECTION, DOSE REINTRODUCED
     Route: 041

REACTIONS (1)
  - Myelosuppression [Recovering/Resolving]

NARRATIVE: CASE EVENT DATE: 20201113
